FAERS Safety Report 10024565 (Version 1)
Quarter: 2014Q1

REPORT INFORMATION
  Report Type: Spontaneous
  Country: US (occurrence: None)
  Receive Date: 20140319
  Receipt Date: 20140319
  Transmission Date: 20141002
  Serious: Yes (Other)
  Sender: FDA-Public Use
  Company Number: None

PATIENT
  Sex: Female
  Weight: 69.85 kg

DRUGS (5)
  1. PROZAC [Suspect]
     Indication: DEPRESSION
     Route: 048
  2. PAXIL [Suspect]
  3. EFFEXOR [Suspect]
  4. ZOLOFT [Suspect]
  5. WELLBUTRIN XL [Suspect]

REACTIONS (1)
  - Drug ineffective [None]
